FAERS Safety Report 21865407 (Version 1)
Quarter: 2023Q1

REPORT INFORMATION
  Report Type: Other
  Country: ID (occurrence: ID)
  Receive Date: 20230116
  Receipt Date: 20230116
  Transmission Date: 20230417
  Serious: Yes (Death, Life-Threatening, Hospitalization)
  Sender: FDA-Public Use
  Company Number: ID-BoehringerIngelheim-2023-BI-211503

PATIENT
  Age: 47 Year
  Sex: Male

DRUGS (1)
  1. ALTEPLASE [Suspect]
     Active Substance: ALTEPLASE
     Indication: Ischaemic stroke
     Route: 042

REACTIONS (6)
  - Death [Fatal]
  - Anaphylactic reaction [Unknown]
  - Myocardial infarction [Unknown]
  - Haemoptysis [Unknown]
  - Tachypnoea [Unknown]
  - Blood pressure decreased [Unknown]
